FAERS Safety Report 4440344-0 (Version None)
Quarter: 2004Q3

REPORT INFORMATION
  Report Type: 
  Country: None (occurrence: None)
  Receive Date: 20040831
  Receipt Date: 20040819
  Transmission Date: 20050211
  Serious: Yes (Hospitalization)
  Sender: FDA-Public Use
  Company Number: CIP04001830

PATIENT
  Age: 73 Year
  Sex: Female

DRUGS (1)
  1. FURADANTIN [Suspect]
     Indication: URINARY TRACT INFECTION
     Dosage: EVERY 2DAY, ORAL
     Route: 048
     Dates: start: 20030101, end: 20040701

REACTIONS (4)
  - HYPERTONIA [None]
  - HYPHAEMA [None]
  - IRIDOCYCLITIS [None]
  - UVEITIS [None]
